FAERS Safety Report 5657968-5 (Version None)
Quarter: 2008Q1

REPORT INFORMATION
  Report Type: 
  Country: None (occurrence: None)
  Receive Date: 20080310
  Receipt Date: 20080227
  Transmission Date: 20080703
  Serious: Yes (Other)
  Sender: FDA-Public Use
  Company Number: PHBS2008AT02974

PATIENT
  Age: 12 Year
  Sex: Female

DRUGS (3)
  1. TERBINAFINE HCL [Suspect]
     Indication: BODY TINEA
     Dosage: 125 MG/DAY
  2. MOMETASONE FUROATE [Suspect]
  3. PIMECROLIMUS [Suspect]
     Indication: DERMATITIS ATOPIC
     Route: 061

REACTIONS (7)
  - DRUG INEFFECTIVE [None]
  - HYPERKERATOSIS [None]
  - PITYRIASIS RUBRA PILARIS [None]
  - RASH ERYTHEMATOUS [None]
  - RASH PRURITIC [None]
  - SKIN DISORDER [None]
  - SKIN HYPOPIGMENTATION [None]
